FAERS Safety Report 5740173-1 (Version None)
Quarter: 2008Q2

REPORT INFORMATION
  Report Type: 
  Country: None (occurrence: None)
  Receive Date: 20080516
  Receipt Date: 20080512
  Transmission Date: 20081010
  Serious: Yes (Death)
  Sender: FDA-Public Use
  Company Number: BE-ABBOTT-08P-013-0451495-00

PATIENT

DRUGS (1)
  1. ADALIMUMAB [Suspect]
     Indication: CROHN'S DISEASE
     Dosage: NOT REPORTED

REACTIONS (1)
  - CARDIAC ARREST [None]
